FAERS Safety Report 16766639 (Version 1)
Quarter: 2019Q4

REPORT INFORMATION
  Report Type: Spontaneous
  Country: US (occurrence: US)
  Receive Date: 20190831
  Receipt Date: 20190831
  Transmission Date: 20200122
  Serious: No
  Sender: FDA-Public Use
  Company Number: None

PATIENT
  Age: 35 Year
  Sex: Female
  Weight: 76.05 kg

DRUGS (1)
  1. BUPROPION EXTENDED RELEASE [Suspect]
     Active Substance: BUPROPION
     Indication: MAJOR DEPRESSION
     Dosage: ?          QUANTITY:30 TABLET(S);?
     Route: 048
     Dates: start: 20190701, end: 20190827

REACTIONS (10)
  - Product substitution issue [None]
  - Mood swings [None]
  - Anger [None]
  - Suicidal ideation [None]
  - Product quality issue [None]
  - Agitation [None]
  - Condition aggravated [None]
  - Depression [None]
  - Violence-related symptom [None]
  - Drug effect faster than expected [None]

NARRATIVE: CASE EVENT DATE: 20190701
